FAERS Safety Report 11804729 (Version 1)
Quarter: 2015Q4

REPORT INFORMATION
  Report Type: Spontaneous
  Country: US (occurrence: None)
  Receive Date: 20151203
  Receipt Date: 20151203
  Transmission Date: 20160305
  Serious: Yes (Hospitalization)
  Sender: FDA-Public Use
  Company Number: None

PATIENT
  Age: 68 Year
  Sex: Male
  Weight: 71.3 kg

DRUGS (1)
  1. HYDROCHLOROTHIAZIDE. [Suspect]
     Active Substance: HYDROCHLOROTHIAZIDE
     Indication: HYPERTENSION
     Route: 048
     Dates: start: 20050318, end: 20150609

REACTIONS (3)
  - Hyponatraemia [None]
  - Inappropriate antidiuretic hormone secretion [None]
  - Polydipsia [None]

NARRATIVE: CASE EVENT DATE: 20150610
